FAERS Safety Report 11421943 (Version 3)
Quarter: 2016Q2

REPORT INFORMATION
  Report Type: Report from Study
  Country: US (occurrence: US)
  Receive Date: 20150827
  Receipt Date: 20160401
  Transmission Date: 20160815
  Serious: Yes (Hospitalization, Other)
  Sender: FDA-Public Use
  Company Number: US-AMGEN-USASL2015087797

PATIENT
  Age: 60 Year
  Sex: Male

DRUGS (4)
  1. ENBREL [Suspect]
     Active Substance: ETANERCEPT
     Dosage: UNK
     Route: 065
  2. ENBREL [Suspect]
     Active Substance: ETANERCEPT
     Indication: PSORIASIS
     Dosage: UNK, QWK
     Route: 065
     Dates: start: 20160210
  3. ENBREL [Suspect]
     Active Substance: ETANERCEPT
     Indication: PSORIATIC ARTHROPATHY
     Dosage: UNK
     Route: 065
     Dates: start: 20141001
  4. OTEZLA [Concomitant]
     Active Substance: APREMILAST
     Dosage: UNK

REACTIONS (17)
  - Coronary artery bypass [Unknown]
  - Infection [Unknown]
  - Feeling abnormal [Unknown]
  - Psoriasis [Not Recovered/Not Resolved]
  - Viral infection [Unknown]
  - Discomfort [Unknown]
  - Ankle operation [Unknown]
  - Injection site haemorrhage [Unknown]
  - Headache [Unknown]
  - Malaise [Unknown]
  - Drug effect incomplete [Unknown]
  - Psoriatic arthropathy [Unknown]
  - Decreased immune responsiveness [Unknown]
  - Fatigue [Unknown]
  - Blood pressure increased [Unknown]
  - Injection site pain [Unknown]
  - Injection site coldness [Unknown]

NARRATIVE: CASE EVENT DATE: 2015
